FAERS Safety Report 8115207-X (Version None)
Quarter: 2012Q1

REPORT INFORMATION
  Report Type: 
  Country: None (occurrence: None)
  Receive Date: 20120123
  Receipt Date: 20120109
  Transmission Date: 20120608
  Serious: Yes (Hospitalization, Other)
  Sender: FDA-Public Use
  Company Number: 2011027658

PATIENT
  Sex: Female
  Weight: 64 kg

DRUGS (27)
  1. HIZENTRA [Suspect]
     Indication: SELECTIVE IGG SUBCLASS DEFICIENCY
     Dosage: SUBCUTANEOUS
     Route: 058
  2. HIZENTRA [Suspect]
     Indication: PRIMARY IMMUNODEFICIENCY SYNDROME
     Dosage: SUBCUTANEOUS
     Route: 058
  3. HIZENTRA [Suspect]
     Indication: PRIMARY IMMUNODEFICIENCY SYNDROME
     Dosage: SUBCUTANEOUS
     Route: 058
  4. HIZENTRA [Suspect]
     Indication: SELECTIVE IGG SUBCLASS DEFICIENCY
     Dosage: SUBCUTANEOUS
     Route: 058
  5. HIZENTRA [Suspect]
     Indication: PRIMARY IMMUNODEFICIENCY SYNDROME
     Dosage: 40 ML 2X/WEEK SUBCUTANEOUS
     Route: 058
     Dates: start: 20111201
  6. HIZENTRA [Suspect]
     Indication: SELECTIVE IGG SUBCLASS DEFICIENCY
     Dosage: 40 ML 2X/WEEK SUBCUTANEOUS
     Route: 058
     Dates: start: 20111201
  7. HIZENTRA [Suspect]
     Indication: SELECTIVE IGG SUBCLASS DEFICIENCY
     Dosage: SUBCUTANEOUS
     Route: 058
  8. HIZENTRA [Suspect]
     Indication: PRIMARY IMMUNODEFICIENCY SYNDROME
     Dosage: SUBCUTANEOUS
     Route: 058
  9. HIZENTRA [Suspect]
     Indication: PRIMARY IMMUNODEFICIENCY SYNDROME
     Dosage: SUBCUTANEOUS
     Route: 058
  10. HIZENTRA [Suspect]
     Indication: SELECTIVE IGG SUBCLASS DEFICIENCY
     Dosage: SUBCUTANEOUS
     Route: 058
  11. ZYRTEC [Concomitant]
  12. HIZENTRA [Suspect]
     Indication: SELECTIVE IGG SUBCLASS DEFICIENCY
     Dosage: SUBCUTANEOUS
     Route: 058
  13. HIZENTRA [Suspect]
     Indication: PRIMARY IMMUNODEFICIENCY SYNDROME
     Dosage: SUBCUTANEOUS
     Route: 058
  14. VICODIN [Suspect]
     Indication: BACK INJURY
     Dates: end: 20110618
  15. MARSHMALLOW ROOT HERB (HERBAL PREPARATION) [Suspect]
     Indication: CYSTITIS
     Dates: start: 20111218, end: 20120102
  16. VANTIN [Concomitant]
  17. HIZENTRA [Suspect]
     Indication: PRIMARY IMMUNODEFICIENCY SYNDROME
     Dosage: SUBCUTANEOUS
     Route: 058
  18. HIZENTRA [Suspect]
     Indication: SELECTIVE IGG SUBCLASS DEFICIENCY
     Dosage: SUBCUTANEOUS
     Route: 058
  19. METOPROLOL TARTRATE [Concomitant]
  20. HIZENTRA [Suspect]
     Indication: PRIMARY IMMUNODEFICIENCY SYNDROME
     Dosage: SUBCUTANEOUS
     Route: 058
  21. HIZENTRA [Suspect]
     Indication: SELECTIVE IGG SUBCLASS DEFICIENCY
     Dosage: SUBCUTANEOUS
     Route: 058
  22. HIZENTRA [Suspect]
     Indication: SELECTIVE IGG SUBCLASS DEFICIENCY
     Dosage: SUBCUTANEOUS
     Route: 058
  23. HIZENTRA [Suspect]
     Indication: PRIMARY IMMUNODEFICIENCY SYNDROME
     Dosage: SUBCUTANEOUS
     Route: 058
  24. HIZENTRA [Suspect]
     Indication: SELECTIVE IGG SUBCLASS DEFICIENCY
     Dosage: SUBCUTANEOUS
     Route: 058
  25. HIZENTRA [Suspect]
     Indication: PRIMARY IMMUNODEFICIENCY SYNDROME
     Dosage: SUBCUTANEOUS
     Route: 058
  26. HIZENTRA [Suspect]
     Indication: PRIMARY IMMUNODEFICIENCY SYNDROME
     Dosage: 75 ML 1X/WEEK, IN 5 ROTATING SITES, RATE WAS LOWERED ON 18-FEB-2011, SO INFUSION LASTED FOUR 4 HOURS
     Route: 058
     Dates: start: 20110128
  27. HIZENTRA [Suspect]
     Indication: SELECTIVE IGG SUBCLASS DEFICIENCY
     Dosage: 75 ML 1X/WEEK, IN 5 ROTATING SITES, RATE WAS LOWERED ON 18-FEB-2011, SO INFUSION LASTED FOUR 4 HOURS
     Route: 058
     Dates: start: 20110128

REACTIONS (14)
  - INCREASED UPPER AIRWAY SECRETION [None]
  - FATIGUE [None]
  - VOMITING [None]
  - BLOOD PRESSURE DECREASED [None]
  - HEADACHE [None]
  - PAIN IN EXTREMITY [None]
  - CHILLS [None]
  - FLATULENCE [None]
  - MIGRAINE [None]
  - NAUSEA [None]
  - URINARY TRACT INFECTION [None]
  - CYSTITIS [None]
  - CHEST PAIN [None]
  - BLOOD SODIUM DECREASED [None]
